FAERS Safety Report 7805530-8 (Version None)
Quarter: 2011Q4

REPORT INFORMATION
  Report Type: 
  Country: None (occurrence: None)
  Receive Date: 20111010
  Receipt Date: 20110929
  Transmission Date: 20120403
  Serious: Yes (Hospitalization, Other)
  Sender: FDA-Public Use
  Company Number: US-ASTRAZENECA-2010SE33303

PATIENT
  Age: 61 Year
  Sex: Female

DRUGS (17)
  1. POTASSIUM CHLORIDE [Concomitant]
  2. CARAFATE [Concomitant]
  3. NEURONTIN [Concomitant]
  4. NORVASC [Concomitant]
  5. PLAVIX [Concomitant]
  6. MORPHINE [Concomitant]
  7. FOLIC ACID [Concomitant]
  8. OMEPRAZOLE [Suspect]
     Route: 048
  9. ASPIRIN [Concomitant]
  10. FLEXERIL [Concomitant]
  11. TOPROL-XL [Suspect]
     Route: 048
  12. LISINOPRIL [Concomitant]
  13. IMDUR [Concomitant]
  14. TIZANIDINE HCL [Concomitant]
  15. NEXIUM [Suspect]
     Dosage: 40 MG TID
     Route: 048
  16. PROTONIX [Concomitant]
     Dosage: BID
  17. DOCUSATE [Concomitant]

REACTIONS (12)
  - HAEMORRHOIDS [None]
  - DRUG INEFFECTIVE [None]
  - DRUG DOSE OMISSION [None]
  - GASTROOESOPHAGEAL REFLUX DISEASE [None]
  - ABDOMINAL PAIN UPPER [None]
  - ULCER [None]
  - DIVERTICULUM [None]
  - ANAEMIA [None]
  - ERUCTATION [None]
  - ABDOMINAL DISCOMFORT [None]
  - INAPPROPRIATE SCHEDULE OF DRUG ADMINISTRATION [None]
  - MALAISE [None]
